FAERS Safety Report 17765905 (Version 2)
Quarter: 2020Q2

REPORT INFORMATION
  Report Type: Spontaneous
  Country: US (occurrence: US)
  Receive Date: 20200511
  Receipt Date: 20200612
  Transmission Date: 20200714
  Serious: Yes (Life-Threatening, Hospitalization, Other)
  Sender: FDA-Public Use
  Company Number: US-AXELLIA-003124

PATIENT
  Age: 75 Year
  Sex: Female

DRUGS (1)
  1. VANCOMYCIN XELLIA [Suspect]
     Active Substance: VANCOMYCIN
     Indication: PROPHYLAXIS
     Dosage: STRENGTH: 1.5 G/300 ML FLEX BAG,DOSE 1.5 GM(ONLY 30 ML)
     Route: 042
     Dates: start: 20200330, end: 20200330

REACTIONS (6)
  - Erythema [Unknown]
  - Cardiac arrest [Recovered/Resolved]
  - Vomiting [Unknown]
  - Feeling hot [Unknown]
  - Dyspnoea [Unknown]
  - Pulseless electrical activity [Unknown]

NARRATIVE: CASE EVENT DATE: 20200330
